FAERS Safety Report 7555376-3 (Version None)
Quarter: 2011Q2

REPORT INFORMATION
  Report Type: 
  Country: None (occurrence: None)
  Receive Date: 20110617
  Receipt Date: 20110614
  Transmission Date: 20111010
  Serious: Yes (Hospitalization)
  Sender: FDA-Public Use
  Company Number: CH-ABBOTT-11P-151-0732062-00

PATIENT
  Age: 63 Year
  Sex: Female

DRUGS (11)
  1. MARCOUMAR [Concomitant]
     Indication: PRODUCT USED FOR UNKNOWN INDICATION
     Dates: start: 20110427
  2. CORDARONE [Suspect]
     Indication: ATRIAL FIBRILLATION
     Route: 048
     Dates: start: 20110427, end: 20110517
  3. ALLOPUR [Concomitant]
     Indication: PRODUCT USED FOR UNKNOWN INDICATION
  4. TORAMID [Concomitant]
     Indication: PRODUCT USED FOR UNKNOWN INDICATION
  5. FRAGMIN [Suspect]
     Indication: ATRIAL FIBRILLATION
     Route: 058
     Dates: start: 20110427, end: 20110517
  6. BILOL [Concomitant]
     Indication: PRODUCT USED FOR UNKNOWN INDICATION
  7. CORDARONE [Suspect]
     Indication: ATRIAL FLUTTER
  8. PERINDOPRIL ERBUMINE [Suspect]
     Indication: ESSENTIAL HYPERTENSION
     Route: 048
     Dates: start: 20110427, end: 20110517
  9. FRAGMIN [Suspect]
     Indication: ATRIAL FLUTTER
  10. NORVASC [Suspect]
     Indication: ESSENTIAL HYPERTENSION
     Route: 048
     Dates: start: 20110427, end: 20110517
  11. NOVALGIN [Concomitant]
     Indication: PRODUCT USED FOR UNKNOWN INDICATION

REACTIONS (2)
  - RASH [None]
  - PANNICULITIS [None]
